FAERS Safety Report 4817809-2 (Version None)
Quarter: 2005Q3

REPORT INFORMATION
  Report Type: 
  Country: None (occurrence: None)
  Receive Date: 20050929
  Receipt Date: 20050719
  Transmission Date: 20060218
  Serious: No
  Sender: FDA-Public Use
  Company Number: 05P-163-0306058-00

PATIENT
  Age: 82 Year
  Sex: Male
  Weight: 80.7403 kg

DRUGS (16)
  1. HUMIRA [Suspect]
     Indication: RHEUMATOID ARTHRITIS
     Dosage: 40 MG, 1 IN 2 WK, SUBCUTANEOUS
     Route: 058
     Dates: start: 20030620
  2. CLOPIDOGREL BISULFATE [Concomitant]
  3. ASPIRIN [Concomitant]
  4. ATORVASTATIN CALCIUM [Concomitant]
  5. AMLODIPINE BESYLATE [Concomitant]
  6. TOPROL-XL [Concomitant]
  7. QUINAPRIL HCL [Concomitant]
  8. METHOTREXATE SODIUM [Concomitant]
  9. MDUR [Concomitant]
  10. TDUR [Concomitant]
  11. FUROSEMIDE [Concomitant]
  12. PREDNISONE [Concomitant]
  13. ANCOVERT [Concomitant]
  14. LEVOTHYROXINE SODIUM [Concomitant]
  15. FOLATE [Concomitant]
  16. DONEPEZIL HYDROCHLORIDE [Concomitant]

REACTIONS (4)
  - DIZZINESS [None]
  - HEADACHE [None]
  - RHINORRHOEA [None]
  - SINUSITIS [None]
